FAERS Safety Report 12630075 (Version 4)
Quarter: 2016Q4

REPORT INFORMATION
  Report Type: Spontaneous
  Country: JP (occurrence: JP)
  Receive Date: 20160808
  Receipt Date: 20161003
  Transmission Date: 20170207
  Serious: Yes (Death, Life-Threatening, Hospitalization, Other)
  Sender: FDA-Public Use
  Company Number: JP-TEVA-673620ACC

PATIENT
  Age: 65 Year
  Sex: Male

DRUGS (3)
  1. BENDAMUSTINE HYDROCHLORIDE. [Suspect]
     Active Substance: BENDAMUSTINE HYDROCHLORIDE
     Indication: DIFFUSE LARGE B-CELL LYMPHOMA
     Route: 042
     Dates: start: 20160622, end: 20160623
  2. RITUXIMAB [Concomitant]
     Active Substance: RITUXIMAB
     Indication: DIFFUSE LARGE B-CELL LYMPHOMA
     Route: 041
     Dates: start: 20160621
  3. NEOPHAGEN                          /00518801/ [Concomitant]
     Active Substance: CYSTEINE\GLYCINE\GLYCYRRHIZIN
     Indication: HEPATIC FUNCTION ABNORMAL
     Dosage: (EVERY MONDAY, WEDNESDAY, AND FRIDAY)
     Route: 041
     Dates: start: 20160620

REACTIONS (8)
  - Off label use [Unknown]
  - Oesophageal candidiasis [Recovered/Resolved]
  - Respiratory failure [Fatal]
  - Constipation [Recovered/Resolved]
  - Jaundice [Not Recovered/Not Resolved]
  - Decreased appetite [Recovered/Resolved]
  - Pulmonary alveolar haemorrhage [Fatal]
  - Cytomegalovirus infection [Recovered/Resolved]

NARRATIVE: CASE EVENT DATE: 20160622
